FAERS Safety Report 7236708-2 (Version None)
Quarter: 2011Q1

REPORT INFORMATION
  Report Type: 
  Country: None (occurrence: None)
  Receive Date: 20110110
  Receipt Date: 20090218
  Transmission Date: 20110831
  Serious: Yes (Hospitalization)
  Sender: FDA-Public Use
  Company Number: LEO-2010-00808

PATIENT
  Age: 94 Year
  Sex: Female
  Weight: 90 kg

DRUGS (3)
  1. PREVISCAN (FLUINDIONE) [Suspect]
     Indication: HIP ARTHROPLASTY
     Dates: start: 20090209, end: 20090216
  2. INNOHEP [Suspect]
     Indication: THROMBOSIS PROPHYLAXIS
     Dosage: 6000 IU (6000 IU, 1 IN 1 D, SUBCUTANEOUS
     Route: 058
  3. LOVENOX [Suspect]
     Indication: SURGERY
     Dosage: 40 MG

REACTIONS (3)
  - DRUG INEFFECTIVE [None]
  - INTERNATIONAL NORMALISED RATIO INCREASED [None]
  - DEEP VEIN THROMBOSIS [None]
